FAERS Safety Report 14369696 (Version 2)
Quarter: 2018Q1

REPORT INFORMATION
  Report Type: Spontaneous
  Country: GB (occurrence: GB)
  Receive Date: 20180110
  Receipt Date: 20180118
  Transmission Date: 20180509
  Serious: Yes (Other)
  Sender: FDA-Public Use
  Company Number: GB-UCBSA-2018000614

PATIENT
  Sex: Male

DRUGS (1)
  1. KEPPRA [Suspect]
     Active Substance: LEVETIRACETAM
     Indication: PETIT MAL EPILEPSY
     Dosage: UNK

REACTIONS (7)
  - Mood swings [Unknown]
  - Poor quality sleep [Unknown]
  - Generalised tonic-clonic seizure [Unknown]
  - Change in seizure presentation [Unknown]
  - Depression [Unknown]
  - Petit mal epilepsy [Unknown]
  - Product substitution issue [Unknown]
